FAERS Safety Report 11054504 (Version 1)
Quarter: 2015Q2

REPORT INFORMATION
  Report Type: Spontaneous
  Country: JP (occurrence: None)
  Receive Date: 20150420
  Receipt Date: 20150420
  Transmission Date: 20150821
  Serious: Yes (Death)
  Sender: FDA-Public Use
  Company Number: 2015BCR00116

PATIENT
  Age: 71 Year
  Sex: Male

DRUGS (1)
  1. RAPIACTA [Suspect]
     Active Substance: PERAMIVIR
     Indication: INFLUENZA
     Dosage: 1X/DAY
     Dates: start: 20150324, end: 20150324

REACTIONS (2)
  - Alcoholic liver disease [None]
  - Condition aggravated [None]

NARRATIVE: CASE EVENT DATE: 20150326
